FAERS Safety Report 6399573-1 (Version None)
Quarter: 2009Q4

REPORT INFORMATION
  Report Type: 
  Country: None (occurrence: None)
  Receive Date: 20091014
  Receipt Date: 20070801
  Transmission Date: 20100525
  Serious: Yes (Other)
  Sender: FDA-Public Use
  Company Number: US-ASTRAZENECA-2006UW24135

PATIENT
  Age: 17330 Day
  Sex: Female
  Weight: 143.8 kg

DRUGS (17)
  1. SEROQUEL [Suspect]
     Indication: SCHIZOPHRENIA
     Dosage: STRENGTH 25 DOSE 25-100MG DAILY
     Route: 048
     Dates: start: 19980609
  2. CLOZARIL [Concomitant]
  3. RISPERDAL [Concomitant]
     Indication: HALLUCINATION
     Dates: start: 20020101
  4. RISPERDAL [Concomitant]
     Route: 048
     Dates: start: 20020611
  5. STELAZINE [Concomitant]
  6. THORAZINE [Concomitant]
  7. TRILAFON [Concomitant]
     Dates: start: 19960101
  8. ZYPREXA [Concomitant]
  9. SERZONE [Concomitant]
     Dates: start: 19960101
  10. WELLBUTRIN SR [Concomitant]
     Dates: start: 20020101
  11. WELLBUTRIN SR [Concomitant]
     Route: 048
     Dates: start: 20020709
  12. PROZAC [Concomitant]
     Dates: start: 19980101
  13. COGENTIN [Concomitant]
     Route: 048
     Dates: start: 19981009
  14. KLONOPIN [Concomitant]
     Indication: INSOMNIA
     Route: 048
     Dates: start: 20020611
  15. KLONOPIN [Concomitant]
     Indication: ANXIETY
     Route: 048
     Dates: start: 20020611
  16. TENORMIN [Concomitant]
     Indication: HYPERTENSION
     Dosage: STRENGTH 25MG, 100MG DOSE 25-100MG DAILY
     Dates: start: 19920828
  17. ULTRAM [Concomitant]
     Indication: PAIN
     Dosage: 100MG AS REQUIRED

REACTIONS (4)
  - DIABETES MELLITUS [None]
  - DIABETIC FOOT [None]
  - DIABETIC NEUROPATHY [None]
  - TARDIVE DYSKINESIA [None]
